FAERS Safety Report 9660052 (Version 1)
Quarter: 2013Q4

REPORT INFORMATION
  Report Type: Spontaneous
  Country: US (occurrence: US)
  Receive Date: 20131031
  Receipt Date: 20131031
  Transmission Date: 20140711
  Serious: No
  Sender: FDA-Public Use
  Company Number: US-ABBVIE-12P-163-1008631-00

PATIENT
  Sex: Female
  Weight: 68.1 kg

DRUGS (4)
  1. BIAXIN [Suspect]
     Indication: UPPER RESPIRATORY TRACT INFECTION
  2. CONJUGATED ESTROGENS (PREMARIN) [Suspect]
     Indication: HYSTERECTOMY
     Dosage: 1.25MG DAILY
     Dates: start: 1977, end: 2011
  3. AUGMENTIN [Suspect]
     Indication: UPPER RESPIRATORY TRACT INFECTION
  4. ROBAXIN [Suspect]
     Indication: UPPER RESPIRATORY TRACT INFECTION
     Dates: end: 2012

REACTIONS (3)
  - Upper respiratory tract infection [Recovering/Resolving]
  - Cystitis haemorrhagic [Unknown]
  - Otitis media [Unknown]
